FAERS Safety Report 19496751 (Version 1)
Quarter: 2021Q3

REPORT INFORMATION
  Report Type: Spontaneous
  Country: US (occurrence: US)
  Receive Date: 20210703
  Receipt Date: 20210703
  Transmission Date: 20211014
  Serious: Yes (Hospitalization, Disabling)
  Sender: FDA-Public Use
  Company Number: None

PATIENT
  Age: 23 Year
  Sex: Male
  Weight: 99.34 kg

DRUGS (1)
  1. RED MAMBA EXTREME 18000 [DIETARY SUPPLEMENT] [Suspect]
     Active Substance: DIETARY SUPPLEMENT
     Route: 048

REACTIONS (6)
  - Pain [None]
  - Hypoaesthesia [None]
  - Limb discomfort [None]
  - Paralysis [None]
  - Pain in extremity [None]
  - Peripheral vascular disorder [None]

NARRATIVE: CASE EVENT DATE: 20210701
